FAERS Safety Report 9816391 (Version 1)
Quarter: 2014Q1

REPORT INFORMATION
  Report Type: Spontaneous
  Country: FR (occurrence: FR)
  Receive Date: 20140114
  Receipt Date: 20140114
  Transmission Date: 20141002
  Serious: Yes (Hospitalization)
  Sender: FDA-Public Use
  Company Number: FR-ABBVIE-14P-056-1187902-00

PATIENT
  Age: 42 Year
  Sex: Male

DRUGS (13)
  1. DEPAKOTE [Suspect]
     Indication: BIPOLAR DISORDER
     Route: 048
  2. DEPAKOTE [Suspect]
     Route: 048
     Dates: start: 20130626, end: 20130626
  3. TERCIAN [Suspect]
     Indication: DEPRESSION
     Route: 048
  4. TERCIAN [Suspect]
     Route: 048
     Dates: start: 20130626, end: 20130626
  5. TERALITHE [Suspect]
     Indication: BIPOLAR DISORDER
     Route: 048
  6. TERALITHE [Suspect]
     Route: 048
     Dates: start: 20130626, end: 20130626
  7. THERALENE [Suspect]
     Indication: INSOMNIA
     Route: 048
  8. THERALENE [Suspect]
     Route: 048
     Dates: start: 20130626, end: 20130626
  9. SEROPLEX [Suspect]
     Indication: DEPRESSION
     Route: 048
  10. SEROPLEX [Suspect]
     Route: 048
     Dates: start: 20130626, end: 20130626
  11. XANAX [Suspect]
     Indication: PRODUCT USED FOR UNKNOWN INDICATION
     Route: 048
     Dates: start: 20130626, end: 20130626
  12. ABILIFY [Suspect]
     Indication: PRODUCT USED FOR UNKNOWN INDICATION
     Route: 048
     Dates: start: 20130626, end: 20130626
  13. LYSANXIA [Concomitant]
     Indication: PRODUCT USED FOR UNKNOWN INDICATION

REACTIONS (3)
  - Convulsion [Unknown]
  - Coma [Unknown]
  - Intentional overdose [Unknown]
